FAERS Safety Report 16840674 (Version 7)
Quarter: 2019Q4

REPORT INFORMATION
  Report Type: Spontaneous
  Country: AR (occurrence: AR)
  Receive Date: 20190923
  Receipt Date: 20191218
  Transmission Date: 20200122
  Serious: Yes (Other)
  Sender: FDA-Public Use
  Company Number: AR-MYLANLABS-2019M1088362

PATIENT
  Age: 26 Year
  Sex: Male

DRUGS (1)
  1. LAPENAX [Suspect]
     Active Substance: CLOZAPINE
     Indication: PRODUCT USED FOR UNKNOWN INDICATION
     Dosage: UNK
     Dates: start: 20170530

REACTIONS (7)
  - Mean cell volume decreased [Unknown]
  - Red blood cell count increased [Unknown]
  - Neutrophil count increased [Recovering/Resolving]
  - Mean cell haemoglobin decreased [Unknown]
  - Leukocytosis [Not Recovered/Not Resolved]
  - Red cell distribution width increased [Unknown]
  - Haemoglobin decreased [Unknown]

NARRATIVE: CASE EVENT DATE: 20190815
